FAERS Safety Report 14022679 (Version 1)
Quarter: 2017Q3

REPORT INFORMATION
  Report Type: Spontaneous
  Country: US (occurrence: US)
  Receive Date: 20170929
  Receipt Date: 20170929
  Transmission Date: 20171128
  Serious: No
  Sender: FDA-Public Use
  Company Number: US-009507513-1709USA012514

PATIENT
  Sex: Female

DRUGS (2)
  1. BELSOMRA [Suspect]
     Active Substance: SUVOREXANT
     Dosage: 5 MG, HS
     Route: 048
  2. BELSOMRA [Suspect]
     Active Substance: SUVOREXANT
     Indication: INSOMNIA
     Dosage: 10 MG, HS (1 TABLET AT NIGHT)
     Route: 048

REACTIONS (2)
  - Vomiting [Unknown]
  - Nausea [Unknown]
